FAERS Safety Report 21417785 (Version 3)
Quarter: 2022Q4

REPORT INFORMATION
  Report Type: Spontaneous
  Country: US (occurrence: US)
  Receive Date: 20221006
  Receipt Date: 20221104
  Transmission Date: 20230113
  Serious: No
  Sender: FDA-Public Use
  Company Number: US-PFIZER INC-202201206627

PATIENT
  Age: 58 Year
  Sex: Female
  Weight: 84.37 kg

DRUGS (2)
  1. DEPO-ESTRADIOL [Suspect]
     Active Substance: ESTRADIOL CYPIONATE
     Indication: Hormone therapy
     Dosage: UNK
  2. DEPO-ESTRADIOL [Suspect]
     Active Substance: ESTRADIOL CYPIONATE
     Dosage: 5 MG/ML (INJECTS 1ML EVERY 4 WEEKS INTO ARM OR BACK OF HIP)
     Dates: start: 2012

REACTIONS (1)
  - Therapeutic response unexpected [Unknown]
